FAERS Safety Report 20262923 (Version 2)
Quarter: 2022Q1

REPORT INFORMATION
  Report Type: Spontaneous
  Country: US (occurrence: US)
  Receive Date: 20211231
  Receipt Date: 20220215
  Transmission Date: 20220423
  Serious: No
  Sender: FDA-Public Use
  Company Number: US-PFIZER INC-202101847183

PATIENT
  Age: 41 Year
  Sex: Male

DRUGS (1)
  1. ENBREL [Suspect]
     Active Substance: ETANERCEPT
     Indication: Rheumatoid arthritis
     Dosage: UNK
     Route: 065
     Dates: start: 2021

REACTIONS (4)
  - Condition aggravated [Unknown]
  - Musculoskeletal stiffness [Unknown]
  - Arthralgia [Unknown]
  - Therapeutic product effect incomplete [Unknown]

NARRATIVE: CASE EVENT DATE: 20210101
